FAERS Safety Report 17106188 (Version 3)
Quarter: 2020Q1

REPORT INFORMATION
  Report Type: Report from Study
  Country: IT (occurrence: IT)
  Receive Date: 20191203
  Receipt Date: 20200316
  Transmission Date: 20200409
  Serious: Yes (Other)
  Sender: FDA-Public Use
  Company Number: IT-BRISTOL-MYERS SQUIBB COMPANY-BMS-2019-112694

PATIENT
  Age: 16 Year
  Sex: Male

DRUGS (1)
  1. ABATACEPT [Suspect]
     Active Substance: ABATACEPT
     Indication: RHEUMATOID ARTHRITIS
     Dosage: 125 MILLIGRAM, QWK
     Route: 058
     Dates: start: 20191030

REACTIONS (4)
  - Cough [Recovering/Resolving]
  - Panniculitis [Recovering/Resolving]
  - Phlebitis [Recovered/Resolved]
  - Lip infection [Unknown]

NARRATIVE: CASE EVENT DATE: 20191121
